FAERS Safety Report 8601656-X (Version None)
Quarter: 2012Q3

REPORT INFORMATION
  Report Type: 
  Country: None (occurrence: None)
  Receive Date: 20120805
  Receipt Date: 20120724
  Transmission Date: 20120928
  Serious: Yes (Hospitalization)
  Sender: FDA-Public Use
  Company Number: 2012-3476

PATIENT
  Age: 61 Year
  Sex: Female

DRUGS (4)
  1. PERLANE-L (HYALURONIC ACID) [Suspect]
     Indication: SKIN COSMETIC PROCEDURE
     Dosage: NOT REPORTED (1 IN 1 CYCLE(S))
     Dates: start: 20120510, end: 20120510
  2. DYSPORT [Suspect]
     Indication: SKIN WRINKLING
     Dosage: NOT REPORTED (1 IN 1 CYCLE(S))
     Dates: start: 20120510, end: 20120510
  3. TOPICAL NUMBING CREAM (ANAESTHETICS, LOCAL) [Concomitant]
  4. ORENCIA (CYTOKINES AND IMMUNOMODULATORS) [Concomitant]

REACTIONS (6)
  - CELLULITIS [None]
  - ERYTHEMA [None]
  - ANIMAL BITE [None]
  - UNEVALUABLE EVENT [None]
  - OEDEMA PERIPHERAL [None]
  - TENDERNESS [None]
